FAERS Safety Report 6433177-7 (Version None)
Quarter: 2009Q4

REPORT INFORMATION
  Report Type: 
  Country: None (occurrence: None)
  Receive Date: 20091109
  Receipt Date: 20091103
  Transmission Date: 20100525
  Serious: Yes (Death, Hospitalization, Other)
  Sender: FDA-Public Use
  Company Number: PHHO2009DE13682

PATIENT
  Sex: Male
  Weight: 140 kg

DRUGS (11)
  1. ALISKIREN ALI+CTAB [Suspect]
     Indication: CARDIAC FAILURE
     Dosage: 150 MG, QD
     Route: 048
     Dates: start: 20090901, end: 20091027
  2. SIMVASTATIN [Concomitant]
  3. ENALAPRIL COMP-ENA+ [Suspect]
     Indication: CARDIAC FAILURE
     Dosage: 10 MG, BID
     Route: 048
     Dates: start: 20090901, end: 20091017
  4. ALISKIREN [Suspect]
     Indication: CARDIAC FAILURE
     Dosage: RUN IN PHASE
     Route: 048
  5. BISOPROLOL [Concomitant]
  6. LEVOTHYROXINE SODIUM [Concomitant]
  7. FURORESE [Concomitant]
  8. MARCUMAR [Concomitant]
  9. DIGITALIS TAB [Concomitant]
  10. CELLIDRIN [Concomitant]
  11. ENALAPRIL MALEATE [Suspect]
     Indication: CARDIAC FAILURE
     Dosage: RUN IN PHASE
     Route: 048

REACTIONS (4)
  - CONCOMITANT DISEASE PROGRESSION [None]
  - GASTRIC CANCER [None]
  - GASTRIC ULCER [None]
  - GASTRIC ULCER HAEMORRHAGE [None]
